FAERS Safety Report 5246934-X (Version None)
Quarter: 2007Q1

REPORT INFORMATION
  Report Type: 
  Country: None (occurrence: None)
  Receive Date: 20070226
  Receipt Date: 20070216
  Transmission Date: 20070707
  Serious: Yes (Hospitalization)
  Sender: FDA-Public Use
  Company Number: JP-BOEHRINGER INGELHEIM PHARMACEUTICALS, INC.-2007-DE-00987GD

PATIENT
  Age: 80 Year
  Sex: Male

DRUGS (5)
  1. RANITIDINE [Suspect]
  2. CODEINE PHOSPHATE [Concomitant]
  3. ROCORNAL [Concomitant]
  4. TATHION [Concomitant]
  5. STRONGER NEO-MINOPHAGEN C [Concomitant]

REACTIONS (3)
  - DIABETES MELLITUS [None]
  - DRUG ERUPTION [None]
  - PRURITUS [None]
